FAERS Safety Report 6475225-4 (Version None)
Quarter: 2009Q4

REPORT INFORMATION
  Report Type: 
  Country: None (occurrence: None)
  Receive Date: 20091204
  Receipt Date: 20090518
  Transmission Date: 20100525
  Serious: Yes (Other)
  Sender: FDA-Public Use
  Company Number: US-ELI_LILLY_AND_COMPANY-US200903007519

PATIENT
  Sex: Female

DRUGS (4)
  1. CYMBALTA [Suspect]
     Indication: DEPRESSION
     Dosage: 30 MG, UNK
     Route: 048
     Dates: start: 20090114, end: 20090318
  2. ORAL CONTRACEPTIVE NOS [Concomitant]
  3. AMBIEN [Concomitant]
  4. ALCOHOL [Concomitant]

REACTIONS (8)
  - BLOOD CHOLESTEROL INCREASED [None]
  - BLOOD SODIUM DECREASED [None]
  - BLOOD TRIGLYCERIDES INCREASED [None]
  - CONTUSION [None]
  - DIZZINESS POSTURAL [None]
  - FALL [None]
  - HIGH DENSITY LIPOPROTEIN INCREASED [None]
  - SYNCOPE [None]
